FAERS Safety Report 8688699 (Version 2)
Quarter: 2013Q4

REPORT INFORMATION
  Report Type: Spontaneous
  Country: US (occurrence: US)
  Receive Date: 20120727
  Receipt Date: 20131101
  Transmission Date: 20140711
  Serious: Yes (Hospitalization, Other)
  Sender: FDA-Public Use
  Company Number: US-009507513-1207USA010238

PATIENT
  Sex: Male

DRUGS (14)
  1. JANUVIA [Suspect]
     Dosage: 50 MG, QD
     Route: 048
  2. ASCORBIC ACID [Concomitant]
  3. ASPIRIN [Concomitant]
  4. CHOLECALCIFEROL [Concomitant]
  5. DOCUSATE SODIUM [Concomitant]
  6. SPIRONOLACTONE [Concomitant]
  7. HYDROCHLOROTHIAZIDE [Concomitant]
  8. INDOMETHACIN [Concomitant]
  9. LISINOPRIL [Concomitant]
  10. VITAMINS (UNSPECIFIED) [Concomitant]
  11. SERTRALINE HYDROCHLORIDE [Concomitant]
  12. SIMVASTATIN [Concomitant]
  13. ALLOPURINOL [Concomitant]
  14. ADVAIR [Concomitant]

REACTIONS (1)
  - Pancreatitis acute [Unknown]
